FAERS Safety Report 8860181 (Version 2)
Quarter: 2012Q4

REPORT INFORMATION
  Report Type: 
  Country: JP (occurrence: JP)
  Receive Date: 20121025
  Receipt Date: 20121107
  Transmission Date: 20130627
  Serious: Yes (Death, Hospitalization)
  Sender: FDA-Public Use
  Company Number: JP-ASTELLAS-2012JP004561

PATIENT
  Age: 77 Year
  Sex: Female
  Weight: 49.9 kg

DRUGS (11)
  1. PROGRAF [Suspect]
     Indication: DERMATOMYOSITIS
     Dosage: 3 mg, UID/QD
     Route: 048
     Dates: start: 20061116, end: 20061215
  2. PREDNISOLONE [Suspect]
     Indication: DERMATOMYOSITIS
     Dosage: 40 mg, Unknown/D
     Route: 048
     Dates: start: 20061120, end: 20061229
  3. GASTER [Concomitant]
     Indication: GASTRIC ULCER
     Dosage: 20 mg, bid
     Route: 048
     Dates: start: 20061116, end: 20061128
  4. SELBEX [Concomitant]
     Indication: GASTRIC ULCER
     Dosage: 50 mg, tid
     Route: 048
     Dates: start: 20061116, end: 20061229
  5. BONALON [Concomitant]
     Indication: OSTEOPOROSIS PROPHYLAXIS
     Dosage: 5 mg, UID/QD
     Route: 048
     Dates: start: 20061118, end: 20061229
  6. OLMETEC [Concomitant]
     Indication: HYPERTENSION
     Dosage: 20 mg, UID/QD
     Route: 048
     Dates: start: 20061116, end: 20061229
  7. BAYASPIRIN [Concomitant]
     Indication: CEREBRAL INFARCTION
     Dosage: 100 mg, UID/QD
     Route: 048
     Dates: start: 20061116, end: 20061229
  8. MEVALOTIN [Concomitant]
     Indication: HYPERTRIGLYCERIDAEMIA
     Dosage: 10 mg, UID/QD
     Route: 048
     Dates: start: 20061128, end: 20061229
  9. OMEPRAL /00661201/ [Concomitant]
     Indication: GASTRIC ULCER
     Dosage: 20 mg, UID/QD
     Route: 048
     Dates: start: 20061129, end: 20061229
  10. NORVASC [Concomitant]
     Indication: HYPERTENSION
     Dosage: 2.5 mg, UID/QD
     Route: 048
     Dates: start: 20061212, end: 20061229
  11. SOLU-MEDROL [Concomitant]
     Indication: DERMATOMYOSITIS
     Dosage: 1000 mg, UID/QD
     Route: 041
     Dates: start: 20061117, end: 20061119

REACTIONS (2)
  - Off label use [Unknown]
  - Pneumocystis jiroveci pneumonia [Fatal]
